FAERS Safety Report 17256203 (Version 1)
Quarter: 2019Q4

REPORT INFORMATION
  Report Type: Spontaneous
  Country: US (occurrence: US)
  Receive Date: 20191216
  Receipt Date: 20191216
  Transmission Date: 20200122
  Serious: Yes (Hospitalization)
  Sender: FDA-Public Use
  Company Number: None

PATIENT
  Age: 59 Year
  Sex: Female

DRUGS (14)
  1. HUMIRA [Suspect]
     Active Substance: ADALIMUMAB
     Indication: ANKYLOSING SPONDYLITIS
     Route: 058
     Dates: start: 20190412
  2. KRILL OIL [Concomitant]
     Active Substance: DIETARY SUPPLEMENT\KRILL OIL
  3. HYDROCO/APAP [Concomitant]
     Active Substance: ACETAMINOPHEN\HYDROCODONE
  4. FOLIC ACID. [Concomitant]
     Active Substance: FOLIC ACID
  5. PREMARIN [Concomitant]
     Active Substance: ESTROGENS, CONJUGATED
  6. MIRALAX [Concomitant]
     Active Substance: POLYETHYLENE GLYCOL 3350
  7. MELOXICAM. [Concomitant]
     Active Substance: MELOXICAM
  8. CALCIUM [Concomitant]
     Active Substance: CALCIUM
  9. VITAMIN D3 [Concomitant]
     Active Substance: CHOLECALCIFEROL
  10. METHOTREXATE. [Concomitant]
     Active Substance: METHOTREXATE
  11. CYMBALTA [Concomitant]
     Active Substance: DULOXETINE HYDROCHLORIDE
  12. NAPROXEN. [Concomitant]
     Active Substance: NAPROXEN
  13. OYST-CAL D [Concomitant]
  14. MOBIC [Concomitant]
     Active Substance: MELOXICAM

REACTIONS (1)
  - Lower limb fracture [None]

NARRATIVE: CASE EVENT DATE: 20191101
